FAERS Safety Report 20610260 (Version 1)
Quarter: 2022Q1

REPORT INFORMATION
  Report Type: Spontaneous
  Country: US (occurrence: US)
  Receive Date: 20220318
  Receipt Date: 20220318
  Transmission Date: 20220424
  Serious: No
  Sender: FDA-Public Use
  Company Number: US-drreddys-SPO/USA/22/0147673

PATIENT
  Age: 18 Year
  Sex: Female

DRUGS (1)
  1. ACCUTANE [Suspect]
     Active Substance: ISOTRETINOIN
     Indication: Product used for unknown indication
     Dosage: RMA ISSUE DATE: 29 OCTOBER 2021 05:55:19 PM, 30 NOVEMBER 2021 01:48:14 PM, 21 DECEMBER 2021 12:31:59

REACTIONS (2)
  - Skin irritation [Unknown]
  - Dry skin [Unknown]
